FAERS Safety Report 10229742 (Version 1)
Quarter: 2014Q2

REPORT INFORMATION
  Report Type: Report from Study
  Country: BR (occurrence: BR)
  Receive Date: 20140611
  Receipt Date: 20140611
  Transmission Date: 20141212
  Serious: Yes (Other)
  Sender: FDA-Public Use
  Company Number: PHHY2014BR071183

PATIENT
  Sex: Female

DRUGS (3)
  1. TRILEPTAL [Suspect]
     Dosage: UNK UKN, UNK
  2. RIVOTRIL [Suspect]
     Dosage: UNK UKN, UNK
  3. DEPAKOTE [Suspect]
     Dosage: UNK UKN, UNK

REACTIONS (4)
  - Drug dependence [Unknown]
  - Convulsion [Unknown]
  - Fracture [Unknown]
  - Fall [Unknown]
